FAERS Safety Report 22530030 (Version 1)
Quarter: 2023Q2

REPORT INFORMATION
  Report Type: Spontaneous
  Country: KR (occurrence: KR)
  Receive Date: 20230607
  Receipt Date: 20230607
  Transmission Date: 20230721
  Serious: Yes (Hospitalization, Other)
  Sender: FDA-Public Use
  Company Number: None

PATIENT
  Age: 54 Year
  Sex: Male

DRUGS (11)
  1. RISPERIDONE [Interacting]
     Active Substance: RISPERIDONE
     Indication: Bipolar disorder
     Dosage: 5 MG
  2. RIFAMPIN [Interacting]
     Active Substance: RIFAMPIN
     Indication: Meningitis tuberculous
     Dosage: 600 MG
  3. DIVALPROEX SODIUM [Interacting]
     Active Substance: DIVALPROEX SODIUM
     Indication: Mania
     Dosage: 600 MG, ONCE PER DAY
  4. DIVALPROEX SODIUM [Interacting]
     Active Substance: DIVALPROEX SODIUM
     Indication: Bipolar disorder
     Dosage: 900 MG, ONCE PER DAY
  5. ISONIAZID [Concomitant]
     Active Substance: ISONIAZID
     Indication: Meningitis tuberculous
     Dosage: 300 MG
  6. QUETIAPINE [Concomitant]
     Active Substance: QUETIAPINE
     Indication: Bipolar disorder
     Dosage: UNK  UNK
  7. QUETIAPINE [Concomitant]
     Active Substance: QUETIAPINE
     Indication: Mania
  8. CLONAZEPAM [Concomitant]
     Active Substance: CLONAZEPAM
     Indication: Bipolar disorder
     Dosage: UNK  UNK
  9. CLONAZEPAM [Concomitant]
     Active Substance: CLONAZEPAM
     Indication: Mania
  10. ETHAMBUTOL [Concomitant]
     Active Substance: ETHAMBUTOL HYDROCHLORIDE
     Indication: Meningitis tuberculous
     Dosage: 1200 MG
  11. PYRAZINAMIDE [Concomitant]
     Active Substance: PYRAZINAMIDE
     Indication: Meningitis tuberculous
     Dosage: 1500 MG

REACTIONS (3)
  - Therapeutic product effect decreased [Recovering/Resolving]
  - Drug interaction [Recovering/Resolving]
  - Antipsychotic drug level decreased [Unknown]
